FAERS Safety Report 15335102 (Version 1)
Quarter: 2018Q3

REPORT INFORMATION
  Report Type: Spontaneous
  Country: US (occurrence: US)
  Receive Date: 20180827
  Receipt Date: 20180827
  Transmission Date: 20181010
  Serious: Yes (Other)
  Sender: FDA-Public Use
  Company Number: None

PATIENT
  Age: 34 Year
  Sex: Female

DRUGS (1)
  1. ADDYI [Suspect]
     Active Substance: FLIBANSERIN
     Indication: DISTURBANCE IN SEXUAL AROUSAL
     Route: 048
     Dates: start: 20180629, end: 20180824

REACTIONS (2)
  - Myalgia [None]
  - Muscle fatigue [None]

NARRATIVE: CASE EVENT DATE: 20180824
